FAERS Safety Report 5573029-8 (Version None)
Quarter: 2007Q4

REPORT INFORMATION
  Report Type: 
  Country: None (occurrence: None)
  Receive Date: 20071224
  Receipt Date: 20071218
  Transmission Date: 20080405
  Serious: Yes (Hospitalization)
  Sender: FDA-Public Use
  Company Number: FR-AVENTIS-200714078FR

PATIENT
  Age: 36 Year
  Sex: Female

DRUGS (1)
  1. LOVENOX [Suspect]
     Indication: THROMBOSIS PROPHYLAXIS
     Route: 058
     Dates: start: 20071001

REACTIONS (4)
  - EXFOLIATIVE RASH [None]
  - INJECTION SITE RASH [None]
  - PSORIASIS [None]
  - RASH VESICULAR [None]
